FAERS Safety Report 7275116-5 (Version None)
Quarter: 2011Q1

REPORT INFORMATION
  Report Type: 
  Country: None (occurrence: None)
  Receive Date: 20110204
  Receipt Date: 20110124
  Transmission Date: 20110831
  Serious: Yes (Other)
  Sender: FDA-Public Use
  Company Number: PHHY2011VE06200

PATIENT
  Sex: Female

DRUGS (6)
  1. COZAAR [Concomitant]
  2. DAFLON (DIOSMIN/HESPERIDIN) [Concomitant]
     Dosage: TWICE A DAY
  3. AMLOVASC [Concomitant]
  4. ACLASTA [Suspect]
     Indication: OSTEOPOROSIS
     Dosage: 5 MG, UNK
     Route: 042
     Dates: start: 20100601
  5. CALCIBON (CALCIUM CITRATE) [Concomitant]
     Dosage: ONCE A DAY
  6. HUMIRA [Concomitant]

REACTIONS (2)
  - OSTEOPOROSIS [None]
  - OSTEOARTHRITIS [None]
